FAERS Safety Report 19709631 (Version 3)
Quarter: 2024Q2

REPORT INFORMATION
  Report Type: Spontaneous
  Country: CN (occurrence: CN)
  Receive Date: 20210817
  Receipt Date: 20240626
  Transmission Date: 20240715
  Serious: Yes (Hospitalization, Other)
  Sender: FDA-Public Use
  Company Number: CN-PFIZER INC-2017SE30560

PATIENT
  Age: 82 Year
  Sex: Female
  Weight: 40 kg

DRUGS (3)
  1. MEROPENEM [Interacting]
     Active Substance: MEROPENEM
     Indication: Anti-infective therapy
     Dosage: 1G [TID], Q8H
     Route: 041
     Dates: start: 20160126, end: 20160205
  2. LANSOPRAZOLE [Interacting]
     Active Substance: LANSOPRAZOLE
     Indication: Prophylaxis
     Dosage: 30MG [QD]
     Route: 041
     Dates: start: 20160118, end: 20160119
  3. LANSOPRAZOLE [Interacting]
     Active Substance: LANSOPRAZOLE
     Dosage: 30MG [QD]
     Route: 041
     Dates: start: 20160126

REACTIONS (2)
  - Drug interaction [Recovered/Resolved]
  - Thrombocytopenia [Recovered/Resolved]
